FAERS Safety Report 14525649 (Version 1)
Quarter: 2018Q1

REPORT INFORMATION
  Report Type: Spontaneous
  Country: US (occurrence: US)
  Receive Date: 20180211
  Receipt Date: 20180211
  Transmission Date: 20180509
  Serious: No
  Sender: FDA-Public Use
  Company Number: None

PATIENT
  Sex: Female
  Weight: 51.75 kg

DRUGS (2)
  1. PRENATAL VITAMINS [Concomitant]
     Active Substance: VITAMINS
  2. LATISSE [Suspect]
     Active Substance: BIMATOPROST
     Indication: SKIN COSMETIC PROCEDURE
     Dosage: ?          QUANTITY:1 DROP(S);?
     Route: 047
     Dates: start: 20180202, end: 20180204

REACTIONS (4)
  - Eye swelling [None]
  - Therapy cessation [None]
  - Ocular hyperaemia [None]
  - Blepharitis [None]

NARRATIVE: CASE EVENT DATE: 20180202
